FAERS Safety Report 14046380 (Version 1)
Quarter: 2017Q4

REPORT INFORMATION
  Report Type: Spontaneous
  Country: US (occurrence: US)
  Receive Date: 20171005
  Receipt Date: 20171005
  Transmission Date: 20180321
  Serious: No
  Sender: FDA-Public Use
  Company Number: US-INDIVIOR LIMITED-INDV-100444-2017

PATIENT
  Sex: Female

DRUGS (1)
  1. BUPRENORPHINE. [Suspect]
     Active Substance: BUPRENORPHINE
     Indication: DRUG USE DISORDER
     Dosage: 8MG, TWICE DAILY (BID)
     Route: 065

REACTIONS (2)
  - Product use issue [Unknown]
  - Maternal exposure during pregnancy [Recovered/Resolved]
